FAERS Safety Report 9157604 (Version 2)
Quarter: 2013Q1

REPORT INFORMATION
  Report Type: Spontaneous
  Country: US (occurrence: US)
  Receive Date: 20130312
  Receipt Date: 20130326
  Transmission Date: 20140127
  Serious: Yes (Other)
  Sender: FDA-Public Use
  Company Number: US-PFIZER INC-2011036741

PATIENT
  Age: 57 Year
  Sex: Female
  Weight: 90.7 kg

DRUGS (6)
  1. CHANTIX [Suspect]
     Indication: SMOKING CESSATION THERAPY
     Dosage: 0.5 MG, 1X/DAY
     Route: 048
     Dates: start: 201102, end: 2011
  2. CHANTIX [Suspect]
     Dosage: UNK
     Dates: start: 2011, end: 201107
  3. PRILOSEC [Concomitant]
     Indication: DYSPEPSIA
     Dosage: UNK, 1X/DAY
  4. ZANTAC [Concomitant]
     Indication: DYSPEPSIA
     Dosage: UNK, 1X/DAY
  5. AMITRIPTYLINE [Concomitant]
     Dosage: UNK
  6. MOBIC [Concomitant]
     Indication: ARTHRITIS
     Dosage: UNK

REACTIONS (3)
  - Arthropathy [Unknown]
  - Abstains from alcohol [Unknown]
  - Therapeutic response unexpected [Unknown]
